FAERS Safety Report 9408979 (Version 1)
Quarter: 2013Q3

REPORT INFORMATION
  Report Type: Spontaneous
  Country: US (occurrence: None)
  Receive Date: 20130717
  Receipt Date: 20130717
  Transmission Date: 20140515
  Serious: Yes (Hospitalization)
  Sender: FDA-Public Use
  Company Number: None

PATIENT
  Age: 79 Year
  Sex: Female
  Weight: 60.1 kg

DRUGS (4)
  1. DOXORUBICIN [Suspect]
  2. RITUXAN [Concomitant]
  3. VINCRISTINE [Concomitant]
  4. CYTOXAN [Concomitant]

REACTIONS (2)
  - Pyrexia [None]
  - Cardiac failure [None]
